FAERS Safety Report 6169321-9 (Version None)
Quarter: 2009Q2

REPORT INFORMATION
  Report Type: 
  Country: None (occurrence: None)
  Receive Date: 20090424
  Receipt Date: 20090415
  Transmission Date: 20091009
  Serious: Yes (Hospitalization)
  Sender: FDA-Public Use
  Company Number: 2009-01466

PATIENT
  Age: 76 Year
  Sex: Female

DRUGS (16)
  1. VELCADE [Suspect]
     Indication: MULTIPLE MYELOMA
     Dosage: 2 MG, INTRAVENOUS
     Route: 042
     Dates: start: 20090119, end: 20090309
  2. CNT0328(CNT0328) VIAL [Suspect]
     Indication: MULTIPLE MYELOMA
     Dosage: INTRAVENOUS
     Route: 042
     Dates: start: 20090119, end: 20090317
  3. PLACEBO() [Suspect]
     Indication: MULTIPLE MYELOMA
     Dosage: 250 MG, INTRAVENOUS
     Route: 042
     Dates: start: 20090119, end: 20090317
  4. ACYCLOVIR [Concomitant]
  5. ALLOPURINOL [Concomitant]
  6. ALPRAZOLAM [Concomitant]
  7. AMLODIPINE [Concomitant]
  8. CALCITROL (ERGOCALCIFEROL, RETINOL, CALCIUM CARBONATE) [Concomitant]
  9. CALCIUM CARBONATE (CALCIUM CARBONATE) [Concomitant]
  10. ENALAPRIL MALEATE [Concomitant]
  11. EPOETIN BETA (EPOETIN BETA) [Concomitant]
  12. FOLIC ACID [Concomitant]
  13. MAGNESIUM CHLORIDE ANHYDROUS (MAGNESIUM CHLORIDE ANHYDROUS) [Concomitant]
  14. POTASSIUM CHLORIDE [Concomitant]
  15. TRAMADOL HCL [Concomitant]
  16. ZOLEDRONIC ACID [Concomitant]

REACTIONS (1)
  - MUSCULOSKELETAL PAIN [None]
